FAERS Safety Report 22329015 (Version 2)
Quarter: 2025Q2

REPORT INFORMATION
  Report Type: Spontaneous
  Country: FR (occurrence: FR)
  Receive Date: 20230517
  Receipt Date: 20250522
  Transmission Date: 20250717
  Serious: Yes (Other)
  Sender: AUROBINDO
  Company Number: FR-JUVISE-2023000180

PATIENT
  Age: 67 Year
  Sex: Female

DRUGS (5)
  1. ANASTROZOLE [Suspect]
     Active Substance: ANASTROZOLE
     Indication: Invasive ductal breast carcinoma
     Route: 065
     Dates: start: 2013
  2. DOCETAXEL [Suspect]
     Active Substance: DOCETAXEL
     Indication: Invasive ductal breast carcinoma
     Route: 065
     Dates: start: 2013
  3. EPIRUBICIN [Suspect]
     Active Substance: EPIRUBICIN
     Indication: Invasive ductal breast carcinoma
     Route: 065
     Dates: start: 2013
  4. CYCLOPHOSPHAMIDE [Suspect]
     Active Substance: CYCLOPHOSPHAMIDE
     Indication: Invasive ductal breast carcinoma
     Route: 065
     Dates: start: 2013
  5. TRASTUZUMAB [Suspect]
     Active Substance: TRASTUZUMAB
     Indication: Invasive ductal breast carcinoma
     Route: 065
     Dates: start: 2013

REACTIONS (2)
  - Paraneoplastic syndrome [Recovered/Resolved]
  - Cushing^s syndrome [Recovered/Resolved]

NARRATIVE: CASE EVENT DATE: 20190401
